FAERS Safety Report 20226688 (Version 2)
Quarter: 2022Q1

REPORT INFORMATION
  Report Type: Report from Study
  Country: US (occurrence: US)
  Receive Date: 20211224
  Receipt Date: 20220307
  Transmission Date: 20220423
  Serious: Yes (Death)
  Sender: FDA-Public Use
  Company Number: US-MMM-RPEJ0T3Q

PATIENT
  Sex: Male

DRUGS (1)
  1. BELANTAMAB MAFODOTIN [Suspect]
     Active Substance: BELANTAMAB MAFODOTIN
     Indication: Product used for unknown indication
     Dosage: UNK
     Dates: start: 20201022, end: 20201113

REACTIONS (1)
  - Disease progression [Fatal]
